FAERS Safety Report 20223482 (Version 1)
Quarter: 2021Q4

REPORT INFORMATION
  Report Type: Spontaneous
  Country: GB (occurrence: None)
  Receive Date: 20211223
  Receipt Date: 20211223
  Transmission Date: 20220303
  Serious: Yes (Disabling)
  Sender: FDA-Public Use
  Company Number: 2021A881705

PATIENT
  Age: 56 Year
  Sex: Male
  Weight: 78 kg

DRUGS (1)
  1. DAPAGLIFLOZIN [Suspect]
     Active Substance: DAPAGLIFLOZIN
     Indication: Diabetes mellitus
     Dosage: 10MG
     Route: 048
     Dates: start: 20211202, end: 20211210

REACTIONS (1)
  - Drug eruption [Not Recovered/Not Resolved]

NARRATIVE: CASE EVENT DATE: 20211203
